FAERS Safety Report 25290067 (Version 1)
Quarter: 2025Q2

REPORT INFORMATION
  Report Type: Spontaneous
  Country: GB (occurrence: GB)
  Receive Date: 20250510
  Receipt Date: 20250510
  Transmission Date: 20250717
  Serious: Yes (Death, Hospitalization, Other)
  Sender: SANOFI AVENTIS
  Company Number: None

PATIENT
  Age: 77 Year
  Sex: Male

DRUGS (20)
  1. DUPILUMAB [Suspect]
     Active Substance: DUPILUMAB
  2. FEXOFENADINE [FEXOFENADINE HYDROCHLORIDE] [Concomitant]
  3. FOLIC ACID [Concomitant]
     Active Substance: FOLIC ACID
  4. LANSOPRAZOLE [Concomitant]
     Active Substance: LANSOPRAZOLE
  5. MONTELUKAST SODIUM [Concomitant]
     Active Substance: MONTELUKAST SODIUM
  6. ACETAMINOPHEN [Concomitant]
     Active Substance: ACETAMINOPHEN
  7. RAMIPRIL [Concomitant]
     Active Substance: RAMIPRIL
  8. ALBUTEROL [Concomitant]
     Active Substance: ALBUTEROL
  9. TIOTROPIUM BROMIDE [Concomitant]
     Active Substance: TIOTROPIUM BROMIDE
  10. VENLAFAXINE HYDROCHLORIDE [Concomitant]
     Active Substance: VENLAFAXINE HYDROCHLORIDE
  11. CALCIUM CARBONATE [Concomitant]
     Active Substance: CALCIUM CARBONATE
  12. ALLOPURINOL [Concomitant]
     Active Substance: ALLOPURINOL
  13. AZITHROMYCIN [Concomitant]
     Active Substance: AZITHROMYCIN
  14. CLOPIDOGREL BESILATE [Concomitant]
     Active Substance: CLOPIDOGREL BESILATE
  15. BECLOMETHASONE\FORMOTEROL [Concomitant]
     Active Substance: BECLOMETHASONE\FORMOTEROL
  16. BISOPROLOL FUMARATE [Concomitant]
     Active Substance: BISOPROLOL FUMARATE
  17. CARBOCYSTEINE [Concomitant]
     Active Substance: CARBOCYSTEINE
  18. CYANOCOBALAMIN [Concomitant]
     Active Substance: CYANOCOBALAMIN
  19. DAPAGLIFLOZIN [Concomitant]
     Active Substance: DAPAGLIFLOZIN
  20. EPLERENONE [Concomitant]
     Active Substance: EPLERENONE

REACTIONS (1)
  - Infective exacerbation of bronchiectasis [Fatal]

NARRATIVE: CASE EVENT DATE: 20250116
